FAERS Safety Report 7827013-1 (Version None)
Quarter: 2011Q4

REPORT INFORMATION
  Report Type: 
  Country: None (occurrence: None)
  Receive Date: 20111020
  Receipt Date: 20111007
  Transmission Date: 20120403
  Serious: Yes (Other)
  Sender: FDA-Public Use
  Company Number: US-BAYER-2011-007251

PATIENT
  Age: 23 Year
  Sex: Female
  Weight: 63.492 kg

DRUGS (21)
  1. ALBUTEROL [Concomitant]
  2. OMEPRAZOLE [Concomitant]
  3. ASACOL [Concomitant]
  4. ATROVENT [Concomitant]
     Dosage: UNK, PRN
     Route: 055
  5. ADVAIR DISKUS 100/50 [Concomitant]
     Dosage: UNK
     Dates: start: 20090101
  6. KETOROLAC TROMETHAMINE [Concomitant]
  7. MELATONIN [Concomitant]
     Dosage: UNK UNK, QD
     Route: 048
  8. DROSPIRENONE AND ETHINYL ESTRADIOL [Suspect]
     Indication: CONTRACEPTION
     Dosage: UNK
     Route: 048
     Dates: start: 20070101, end: 20090101
  9. NSAID'S [Concomitant]
     Dosage: UNK
     Dates: start: 19900101
  10. ALBUTEROL [Concomitant]
     Dosage: UNK, PRN
     Route: 055
  11. ATROVENT [Concomitant]
     Dosage: UNK
     Dates: start: 20050101
  12. ST. JOHN'S WORT [Concomitant]
     Dosage: UNK
     Dates: start: 20080101
  13. LIALDA [Concomitant]
  14. SULFASALAZINE [Concomitant]
  15. FLOVENT [Concomitant]
  16. FLOVENT [Concomitant]
     Dosage: UNK, BID
     Route: 055
  17. METAMUCIL-2 [Concomitant]
  18. ACETAMINOPHEN [Concomitant]
     Dosage: UNK UNK, PRN
     Route: 048
  19. YASMIN [Suspect]
     Indication: CONTRACEPTION
     Dosage: UNK
     Route: 048
     Dates: start: 20070101, end: 20090101
  20. PREDNISONE [Concomitant]
  21. PROTON PUMP INHIBITORS [Concomitant]

REACTIONS (4)
  - CHOLECYSTITIS CHRONIC [None]
  - BILIARY DYSKINESIA [None]
  - GALLBLADDER NON-FUNCTIONING [None]
  - PAIN [None]
